FAERS Safety Report 5124159-6 (Version None)
Quarter: 2006Q4

REPORT INFORMATION
  Report Type: 
  Country: None (occurrence: None)
  Receive Date: 20061010
  Receipt Date: 20060522
  Transmission Date: 20070319
  Serious: No
  Sender: FDA-Public Use
  Company Number: US-BRISTOL-MYERS SQUIBB COMPANY-13394754

PATIENT
  Age: 81 Year
  Sex: Female
  Weight: 82 kg

DRUGS (11)
  1. AVAPRO [Suspect]
     Dates: start: 20060501, end: 20060501
  2. COUMADIN [Concomitant]
     Indication: ATRIAL FIBRILLATION
  3. PLAVIX [Concomitant]
     Indication: CORONARY ARTERY BYPASS
     Dosage: INITIATED 10 YEARS AGO
  4. FUROSEMIDE [Concomitant]
     Dosage: DURATION: 20 YEARS
  5. LEVOTHYROXINE SODIUM [Concomitant]
     Dosage: DURATION: 30 YEARS
  6. CATAPRES [Concomitant]
     Dates: start: 20050801
  7. CARTIA XT [Concomitant]
     Dates: start: 20050801
  8. METOPROLOL TARTRATE [Concomitant]
     Dosage: DURATION: 5 YEARS
  9. ZYRTEC [Concomitant]
  10. LIPITOR [Concomitant]
     Dosage: DURATION: 20 YEARS
  11. ASPIRIN [Concomitant]
     Dates: start: 20050801

REACTIONS (1)
  - BLOOD POTASSIUM INCREASED [None]
